FAERS Safety Report 17186933 (Version 1)
Quarter: 2019Q4

REPORT INFORMATION
  Report Type: Spontaneous
  Country: FR (occurrence: FR)
  Receive Date: 20191220
  Receipt Date: 20191220
  Transmission Date: 20200122
  Serious: Yes (Hospitalization)
  Sender: FDA-Public Use
  Company Number: FR-CELGENEUS-FRA-20191105522

PATIENT
  Age: 58 Year
  Sex: Female

DRUGS (10)
  1. LANSOPRAZOLE. [Concomitant]
     Active Substance: LANSOPRAZOLE
     Indication: PAIN
     Route: 065
     Dates: start: 201908
  2. LACTULOSE. [Concomitant]
     Active Substance: LACTULOSE
     Indication: CONSTIPATION
     Route: 065
     Dates: start: 201909
  3. IDHIFA [Suspect]
     Active Substance: ENASIDENIB MESYLATE
     Indication: ACUTE MYELOID LEUKAEMIA
     Dosage: 100 MILLIGRAM
     Route: 048
     Dates: start: 20190907, end: 20190920
  4. ESCITALOPRAM [Concomitant]
     Active Substance: ESCITALOPRAM OXALATE
     Indication: ANXIETY
     Route: 065
     Dates: start: 2019
  5. PRIMPERAN [Concomitant]
     Active Substance: METOCLOPRAMIDE HYDROCHLORIDE
     Indication: NAUSEA
     Route: 065
     Dates: start: 201909
  6. TOPALGIC [Concomitant]
     Indication: ABDOMINAL PAIN
     Route: 065
     Dates: start: 201909
  7. ZOPICLONE [Concomitant]
     Active Substance: ZOPICLONE
     Indication: INSOMNIA
     Route: 065
     Dates: start: 201909
  8. IDHIFA [Suspect]
     Active Substance: ENASIDENIB MESYLATE
     Dosage: 50 MILLIGRAM
     Route: 048
     Dates: start: 20190926, end: 20191111
  9. IDHIFA [Suspect]
     Active Substance: ENASIDENIB MESYLATE
     Dosage: 100 MILLIGRAM
     Route: 048
     Dates: start: 20191112
  10. BISOPROLOL [Concomitant]
     Active Substance: BISOPROLOL
     Indication: PRODUCT USED FOR UNKNOWN INDICATION
     Route: 065
     Dates: start: 2019

REACTIONS (3)
  - Fatigue [Recovered/Resolved]
  - Abdominal pain [Recovered/Resolved]
  - Asthenia [Recovered/Resolved]

NARRATIVE: CASE EVENT DATE: 20190920
